FAERS Safety Report 15456469 (Version 1)
Quarter: 2018Q4

REPORT INFORMATION
  Report Type: Report from Study
  Country: US (occurrence: US)
  Receive Date: 20181002
  Receipt Date: 20181002
  Transmission Date: 20190204
  Serious: Yes (Other)
  Sender: FDA-Public Use
  Company Number: US-SA-2018SA266202

PATIENT
  Age: 45 Year
  Sex: Male

DRUGS (2)
  1. FIASP [Concomitant]
     Active Substance: INSULIN ASPART
  2. INSULIN GLARGINE [Suspect]
     Active Substance: INSULIN GLARGINE
     Indication: TYPE 2 DIABETES MELLITUS
     Dosage: 66 U
     Dates: start: 20180808

REACTIONS (6)
  - Neuropathy peripheral [Unknown]
  - Back disorder [Unknown]
  - Product dose omission [Unknown]
  - Blood glucose increased [Recovering/Resolving]
  - Unevaluable event [Unknown]
  - Therapeutic response decreased [Unknown]

NARRATIVE: CASE EVENT DATE: 20180919
